FAERS Safety Report 17031298 (Version 1)
Quarter: 2019Q4

REPORT INFORMATION
  Report Type: Spontaneous
  Country: US (occurrence: US)
  Receive Date: 20191114
  Receipt Date: 20191114
  Transmission Date: 20200122
  Serious: No
  Sender: FDA-Public Use
  Company Number: US-TEVA-2019-US-1137029

PATIENT
  Age: 16 Year
  Sex: Male

DRUGS (1)
  1. TEVA CROMOLYN SODIUM INHALATION SOLUTION [Suspect]
     Active Substance: CROMOLYN SODIUM
     Indication: SYSTEMIC MASTOCYTOSIS
     Route: 048

REACTIONS (2)
  - Product dispensing error [Unknown]
  - Product prescribing error [Unknown]
